FAERS Safety Report 6122178-4 (Version None)
Quarter: 2009Q1

REPORT INFORMATION
  Report Type: 
  Country: None (occurrence: None)
  Receive Date: 20090316
  Receipt Date: 20090310
  Transmission Date: 20090719
  Serious: Yes (Life-Threatening, Hospitalization, Disabling)
  Sender: FDA-Public Use
  Company Number: 2009JP001347

PATIENT
  Age: 45 Year
  Sex: Male
  Weight: 70 kg

DRUGS (9)
  1. FUNGUARD(MICAFUNGIN) INJECTION [Suspect]
     Indication: SYSTEMIC CANDIDA
     Dosage: 300 MG, D, IV DRIP
     Route: 041
  2. ONOACT(LANDIOLOL HYDROCHLORIDE) INJECTION [Suspect]
     Dosage: IV DRIP
     Route: 041
  3. DIGOXIN [Suspect]
     Dosage: IV DRIP
     Route: 041
  4. AMBISOME [Suspect]
     Dosage: IV DRIP
     Route: 041
  5. ELENTAL (VITAMINS NOS, MINERALS NOS) ENTERIC FORM [Concomitant]
  6. MEROPENEM (MEROPENEM TRIHYDRATE) INJECTION [Concomitant]
  7. VANCOMYCIN [Concomitant]
  8. NORADRENALINE (NOREPINEPHRINE) INJECTION [Concomitant]
  9. PITRESSIN (VASOPRESSIN TANNATE) INJECTION [Concomitant]

REACTIONS (3)
  - ATRIOVENTRICULAR BLOCK COMPLETE [None]
  - ENDOPHTHALMITIS [None]
  - HYPERBILIRUBINAEMIA [None]
